FAERS Safety Report 13619191 (Version 1)
Quarter: 2017Q2

REPORT INFORMATION
  Report Type: Spontaneous
  Country: SI (occurrence: SI)
  Receive Date: 20170606
  Receipt Date: 20170606
  Transmission Date: 20170830
  Serious: Yes (Hospitalization, Other)
  Sender: FDA-Public Use
  Company Number: PHHY2017SI077140

PATIENT
  Age: 71 Year
  Sex: Female
  Weight: 80 kg

DRUGS (5)
  1. VOLTAREN [Suspect]
     Active Substance: DICLOFENAC SODIUM
     Indication: VENOUS ULCER PAIN
     Dosage: UNK UNK, QD
     Route: 048
     Dates: start: 201106, end: 20111116
  2. MAREVAN [Suspect]
     Active Substance: WARFARIN SODIUM
     Indication: DEEP VEIN THROMBOSIS
     Dosage: UNK
     Route: 048
  3. DORETA [Concomitant]
     Active Substance: ACETAMINOPHEN\TRAMADOL HYDROCHLORIDE
     Indication: VENOUS ULCER PAIN
     Dosage: 4 DF, QD
     Route: 048
     Dates: start: 201110, end: 20111123
  4. SKOPRYL [Concomitant]
     Indication: HYPERTENSION
     Dosage: 1 DF, QD
     Route: 048
  5. VOLTAREN [Suspect]
     Active Substance: DICLOFENAC SODIUM
     Indication: VENOUS ULCER PAIN
     Dosage: UNK UNK, QD
     Route: 048
     Dates: start: 201106, end: 20111116

REACTIONS (4)
  - Gastric ulcer [Recovering/Resolving]
  - Skin ulcer haemorrhage [Recovering/Resolving]
  - Anaemia [Recovering/Resolving]
  - Deep vein thrombosis [Recovering/Resolving]

NARRATIVE: CASE EVENT DATE: 201108
